FAERS Safety Report 6960613-X (Version None)
Quarter: 2010Q3

REPORT INFORMATION
  Report Type: 
  Country: None (occurrence: None)
  Receive Date: 20100901
  Receipt Date: 20100819
  Transmission Date: 20110219
  Serious: Yes (Hospitalization)
  Sender: FDA-Public Use
  Company Number: US-ELI_LILLY_AND_COMPANY-US201008007046

PATIENT
  Sex: Male

DRUGS (3)
  1. FORTEO [Suspect]
     Indication: OSTEOPOROSIS
     Dosage: UNK, UNK
     Dates: start: 20091201, end: 20100815
  2. DIOVAN [Concomitant]
     Dosage: 80 MG, DAILY (1/D)
  3. CRESTOR [Concomitant]
     Dosage: 5 MG, UNKNOWN

REACTIONS (3)
  - BREAST HYPERPLASIA [None]
  - BREAST MASS [None]
  - GYNAECOMASTIA [None]
